FAERS Safety Report 7010795-9 (Version None)
Quarter: 2010Q3

REPORT INFORMATION
  Report Type: 
  Country: None (occurrence: None)
  Receive Date: 20100923
  Receipt Date: 20100913
  Transmission Date: 20110219
  Serious: Yes (Other)
  Sender: FDA-Public Use
  Company Number: US-PFIZER INC-2010098270

PATIENT
  Sex: Female
  Weight: 74.842 kg

DRUGS (3)
  1. ARTHROTEC [Suspect]
     Indication: OSTEOARTHRITIS
     Dosage: 1 DF, 2X/DAY
     Route: 048
     Dates: start: 20100512, end: 20100607
  2. HYDROCHLOROTHIAZIDE [Concomitant]
  3. TYLENOL W/ CODEINE NO. 3 [Concomitant]

REACTIONS (2)
  - RASH MACULO-PAPULAR [None]
  - SKIN DISCOLOURATION [None]
